FAERS Safety Report 7248118-2 (Version None)
Quarter: 2011Q1

REPORT INFORMATION
  Report Type: 
  Country: None (occurrence: None)
  Receive Date: 20110127
  Receipt Date: 20110124
  Transmission Date: 20110831
  Serious: Yes (Other)
  Sender: FDA-Public Use
  Company Number: US-B.I. PHARMACEUTICALS,INC./RIDGEFIELD-2010-BP-14911BP

PATIENT
  Sex: Female

DRUGS (6)
  1. CRESTOR [Concomitant]
     Indication: BLOOD CHOLESTEROL INCREASED
  2. PRADAXA [Suspect]
     Indication: ATRIAL FIBRILLATION
     Dosage: 300 MG
     Route: 048
     Dates: start: 20101211
  3. ACIPHEX [Concomitant]
     Indication: GASTRIC DISORDER
  4. SYNTHROID [Concomitant]
     Indication: HYPOTHYROIDISM
  5. TOPROL-XL [Concomitant]
     Indication: HYPERTENSION
  6. MULTAQ [Concomitant]
     Indication: ABDOMINAL DISCOMFORT
     Dosage: 800 MG

REACTIONS (5)
  - HYPOTENSION [None]
  - DIZZINESS [None]
  - MALAISE [None]
  - FATIGUE [None]
  - HEART RATE INCREASED [None]
